FAERS Safety Report 8912033 (Version 4)
Quarter: 2013Q3

REPORT INFORMATION
  Report Type: Report from Study
  Country: DE (occurrence: DE)
  Receive Date: 20121116
  Receipt Date: 20130828
  Transmission Date: 20140515
  Serious: Yes (Hospitalization)
  Sender: FDA-Public Use
  Company Number: DE-UCBSA-070893

PATIENT
  Sex: Female
  Weight: 75 kg

DRUGS (9)
  1. CIMZIA [Suspect]
     Indication: RHEUMATOID ARTHRITIS
     Dosage: DOSE: 200 MG
     Route: 058
     Dates: start: 20120906
  2. ADALIZUMAB [Suspect]
     Dosage: CUMULATIVE DOSE: 40 MG
     Dates: start: 201005, end: 201209
  3. LANTAREL [Suspect]
     Dosage: 25MG/W
  4. LANTAREL [Suspect]
     Route: 048
     Dates: start: 201003, end: 201005
  5. LANTAREL [Suspect]
     Dosage: 25 MG/W
     Route: 051
     Dates: start: 200906
  6. LANTAREL [Suspect]
     Route: 051
     Dates: start: 200905, end: 200905
  7. PREDNISOLONE [Concomitant]
     Indication: RHEUMATOID ARTHRITIS
     Route: 048
     Dates: start: 20070716
  8. METEX [Concomitant]
     Indication: RHEUMATOID ARTHRITIS
     Route: 058
     Dates: start: 20100517
  9. ARCOXIA [Concomitant]
     Indication: RHEUMATOID ARTHRITIS
     Dates: end: 20120918

REACTIONS (1)
  - Duodenal ulcer [Unknown]
